FAERS Safety Report 7602228-6 (Version None)
Quarter: 2011Q3

REPORT INFORMATION
  Report Type: 
  Country: None (occurrence: None)
  Receive Date: 20110711
  Receipt Date: 20110707
  Transmission Date: 20111222
  Serious: Yes (Death)
  Sender: FDA-Public Use
  Company Number: US-ASTRAZENECA-2011SE31204

PATIENT
  Age: 33 Year
  Sex: Male

DRUGS (10)
  1. SEROQUEL [Suspect]
     Indication: MENTAL DISORDER
     Route: 048
     Dates: start: 20100916
  2. SEROQUEL [Suspect]
     Route: 048
  3. SEROQUEL [Suspect]
     Route: 048
  4. SEROQUEL [Suspect]
     Route: 048
  5. SEROQUEL [Suspect]
     Indication: ANXIETY
     Route: 048
     Dates: start: 20100916
  6. SEROQUEL [Suspect]
     Route: 048
  7. SEROQUEL [Suspect]
     Route: 048
  8. SEROQUEL [Suspect]
     Route: 048
  9. SEROQUEL [Suspect]
     Indication: POST-TRAUMATIC STRESS DISORDER
     Route: 048
     Dates: start: 20100916
  10. CLONAZEPAM [Concomitant]
     Dates: start: 20100916

REACTIONS (6)
  - WEIGHT INCREASED [None]
  - INCORRECT DOSE ADMINISTERED [None]
  - DRUG PRESCRIBING ERROR [None]
  - HYPERSOMNIA [None]
  - PANIC ATTACK [None]
  - ADVERSE DRUG REACTION [None]
